FAERS Safety Report 11833244 (Version 2)
Quarter: 2016Q4

REPORT INFORMATION
  Report Type: Spontaneous
  Country: US (occurrence: US)
  Receive Date: 20151214
  Receipt Date: 20161208
  Transmission Date: 20170206
  Serious: No
  Sender: FDA-Public Use
  Company Number: US-PERRIGO-15US000382

PATIENT
  Age: 44 Year
  Sex: Female

DRUGS (1)
  1. MINOXIDIL. [Suspect]
     Active Substance: MINOXIDIL
     Indication: ALOPECIA
     Dosage: 1 ML, BID
     Route: 061
     Dates: start: 201409, end: 201412

REACTIONS (6)
  - Application site discomfort [Not Recovered/Not Resolved]
  - Application site pruritus [Recovering/Resolving]
  - Drug administered at inappropriate site [Recovered/Resolved]
  - Application site rash [Recovering/Resolving]
  - Condition aggravated [Recovering/Resolving]
  - Application site irritation [Recovering/Resolving]

NARRATIVE: CASE EVENT DATE: 201409
